FAERS Safety Report 10430489 (Version 1)
Quarter: 2014Q3

REPORT INFORMATION
  Report Type: Spontaneous
  Country: US (occurrence: None)
  Receive Date: 20140903
  Receipt Date: 20140903
  Transmission Date: 20150326
  Serious: No
  Sender: FDA-Public Use
  Company Number: None

PATIENT

DRUGS (1)
  1. DEXAMETHASONE. [Suspect]
     Active Substance: DEXAMETHASONE
     Dosage: 8 TABLETS A DAY?FOUR 4MG TABLETS TWICE A DAY ?ORAL?PRODUCT ADMINISTERED BY : VETERINARIAN/VETERINARY STAFF
     Route: 048
     Dates: start: 2014

REACTIONS (1)
  - Osteitis [None]

NARRATIVE: CASE EVENT DATE: 201408
